FAERS Safety Report 7625853-5 (Version None)
Quarter: 2011Q3

REPORT INFORMATION
  Report Type: 
  Country: None (occurrence: None)
  Receive Date: 20110721
  Receipt Date: 20110713
  Transmission Date: 20111222
  Serious: Yes (Other)
  Sender: FDA-Public Use
  Company Number: US-JNJFOC-20110706317

PATIENT
  Age: 60 Year
  Sex: Male

DRUGS (5)
  1. UNSPECIFIED ANTI-HYPERTENSIVE MEDICATION [Concomitant]
     Indication: HYPERTENSION
     Route: 065
  2. MINOXIDIL [Suspect]
     Indication: ALOPECIA
     Dosage: 1/2 CAPFUL
     Route: 061
     Dates: start: 20110701, end: 20110711
  3. ANTI-ANXIETY MEDICATION (NOS) [Concomitant]
     Indication: ANXIETY
     Route: 065
  4. MINOXIDIL [Suspect]
     Route: 061
  5. UNSPECIFIED ANTILIPEMIC MEDICATION [Concomitant]
     Indication: BLOOD CHOLESTEROL INCREASED
     Route: 065

REACTIONS (5)
  - SWELLING FACE [None]
  - WEIGHT INCREASED [None]
  - ABDOMINAL DISTENSION [None]
  - FLUID RETENTION [None]
  - URINE FLOW DECREASED [None]
